FAERS Safety Report 16460839 (Version 2)
Quarter: 2019Q2

REPORT INFORMATION
  Report Type: Spontaneous
  Country: US (occurrence: US)
  Receive Date: 20190620
  Receipt Date: 20190620
  Transmission Date: 20190711
  Serious: Yes (Hospitalization)
  Sender: FDA-Public Use
  Company Number: PHEH2019US025414

PATIENT

DRUGS (9)
  1. MOXIFLOXACIN. [Suspect]
     Active Substance: MOXIFLOXACIN
     Indication: MYCOBACTERIUM AVIUM COMPLEX INFECTION
     Dosage: UNK
     Route: 065
  2. CIPROFLOXACIN. [Suspect]
     Active Substance: CIPROFLOXACIN
     Indication: MYCOBACTERIUM AVIUM COMPLEX INFECTION
     Dosage: UNK
     Route: 065
  3. LINEZOLID. [Suspect]
     Active Substance: LINEZOLID
     Indication: MYCOBACTERIUM AVIUM COMPLEX INFECTION
     Dosage: UNK
     Route: 065
  4. ETHAMBUTOL [Suspect]
     Active Substance: ETHAMBUTOL HYDROCHLORIDE
     Indication: MYCOBACTERIUM AVIUM COMPLEX INFECTION
     Dosage: UNK
     Route: 065
  5. RIFAMPIN. [Suspect]
     Active Substance: RIFAMPIN
     Indication: MYCOBACTERIUM AVIUM COMPLEX INFECTION
     Dosage: UNK
     Route: 065
  6. CLARITHROMYCIN. [Suspect]
     Active Substance: CLARITHROMYCIN
     Indication: MYCOBACTERIUM AVIUM COMPLEX INFECTION
     Dosage: UNK
     Route: 065
  7. INVANZ [Suspect]
     Active Substance: ERTAPENEM SODIUM
     Indication: MYCOBACTERIUM AVIUM COMPLEX INFECTION
     Dosage: UNK UNK, Q4W
     Route: 065
  8. AMIKACIN. [Suspect]
     Active Substance: AMIKACIN
     Dosage: UNK, QW3
     Route: 065
     Dates: start: 201905
  9. AMIKACIN. [Suspect]
     Active Substance: AMIKACIN
     Indication: MYCOBACTERIUM AVIUM COMPLEX INFECTION
     Dosage: UNK UNK, Q2MO
     Route: 065

REACTIONS (6)
  - Effusion [Unknown]
  - Pneumothorax [Unknown]
  - Productive cough [Unknown]
  - Drug intolerance [Unknown]
  - Lung infiltration [Unknown]
  - Drug resistance [Unknown]

NARRATIVE: CASE EVENT DATE: 201811
